FAERS Safety Report 24767586 (Version 2)
Quarter: 2025Q1

REPORT INFORMATION
  Report Type: Report from Study
  Country: KR (occurrence: KR)
  Receive Date: 20241223
  Receipt Date: 20250109
  Transmission Date: 20250409
  Serious: Yes (Death, Hospitalization, Other)
  Sender: TAKEDA
  Company Number: KR-TAKEDA-2024TUS127615

PATIENT
  Age: 26 Year
  Sex: Female
  Weight: 44.1 kg

DRUGS (33)
  1. MARIBAVIR [Suspect]
     Active Substance: MARIBAVIR
     Indication: Cytomegalovirus infection
     Dosage: 400 MILLIGRAM, BID
     Dates: start: 20241114, end: 20241206
  2. AMLODIPINE OROTATE [Concomitant]
     Active Substance: AMLODIPINE OROTATE
     Indication: Hypertension
     Dosage: 5 MILLIGRAM, QD
     Dates: start: 20241120, end: 20241201
  3. RUXOLITINIB [Concomitant]
     Active Substance: RUXOLITINIB
     Indication: Acute myeloid leukaemia
     Dosage: 20 MILLIGRAM, BID
     Dates: start: 20240816, end: 20241206
  4. DEFEROXAMINE MESYLATE [Concomitant]
     Active Substance: DEFEROXAMINE MESYLATE
     Indication: Haemochromatosis
     Dosage: 1840 MILLIGRAM, QD
     Dates: start: 20241101, end: 20241120
  5. Godex [Concomitant]
     Indication: Graft versus host disease in liver
     Dosage: UNK UNK, TID
     Dates: start: 20241031, end: 20241117
  6. DIETARY SUPPLEMENT\HERBALS\MILK THISTLE [Concomitant]
     Active Substance: MILK THISTLE
     Indication: Graft versus host disease in liver
     Dosage: 280 MILLIGRAM, BID
     Dates: start: 20241128, end: 20241206
  7. SULFAMETHOXAZOLE\TRIMETHOPRIM [Concomitant]
     Active Substance: SULFAMETHOXAZOLE\TRIMETHOPRIM
     Indication: Infection prophylaxis
     Dosage: UNK UNK, QD
     Dates: start: 20240903, end: 20241204
  8. ORNITHINE ASPARTATE [Concomitant]
     Active Substance: ORNITHINE ASPARTATE
     Indication: Graft versus host disease in liver
     Dosage: 2000 MILLIGRAM, QD
     Dates: start: 20241118, end: 20241206
  9. UROCITRA C [Concomitant]
     Indication: Renal tubular acidosis
     Dosage: 20 GRAM, QID
     Dates: start: 20241125, end: 20241128
  10. DIFLUCAN [Concomitant]
     Active Substance: FLUCONAZOLE
     Indication: Fungal infection
     Dosage: 400 MILLIGRAM, QD
     Dates: start: 20241118, end: 20241205
  11. NOXAFIL [Concomitant]
     Active Substance: POSACONAZOLE
     Indication: Fungal infection
     Dosage: 500 MILLIGRAM, QD
     Dates: start: 20241112, end: 20241117
  12. GLOBULIN [Concomitant]
     Indication: Infection prophylaxis
     Dosage: 50000 MILLIGRAM, QD
     Dates: start: 20241206, end: 20241206
  13. DOBUTAMINE [Concomitant]
     Active Substance: DOBUTAMINE HYDROCHLORIDE
     Indication: Septic shock
     Dosage: 500 MILLIGRAM, QD
     Dates: start: 20241206, end: 20241206
  14. DOBURAN [Concomitant]
     Indication: Septic shock
     Dosage: 500 MILLIGRAM, QD
     Dates: start: 20241206, end: 20241206
  15. DOPAMINE [Concomitant]
     Active Substance: DOPAMINE HYDROCHLORIDE
     Indication: Septic shock
     Dosage: 1600 MILLIGRAM, QD
     Dates: start: 20241206, end: 20241206
  16. DOPAMINE [Concomitant]
     Active Substance: DOPAMINE HYDROCHLORIDE
     Dosage: 2800 MILLIGRAM, QD
     Dates: start: 20241206, end: 20241206
  17. EPINEPHRINE [Concomitant]
     Active Substance: EPINEPHRINE
     Indication: Septic shock
     Dosage: 10 MILLIGRAM, QD
     Dates: start: 20241206, end: 20241207
  18. VASOPRESSIN [Concomitant]
     Active Substance: VASOPRESSIN
     Indication: Septic shock
     Dosage: 160 INTERNATIONAL UNIT, QD
     Dates: start: 20241206, end: 20241206
  19. Norpin [Concomitant]
     Indication: Septic shock
     Dosage: 20 MILLIGRAM, QD
     Dates: start: 20241206, end: 20241206
  20. Norpin [Concomitant]
     Dosage: 40 MILLIGRAM, QD
     Dates: start: 20241206, end: 20241206
  21. VOLULYTE [Concomitant]
     Indication: Septic shock
     Dosage: 500 MILLILITER, QD
     Dates: start: 20241206, end: 20241206
  22. MAXIPIME [Concomitant]
     Active Substance: CEFEPIME HYDROCHLORIDE
     Indication: Septic shock
     Dosage: 2 GRAM, QD
     Dates: start: 20241206, end: 20241206
  23. MEROPENEM [Concomitant]
     Active Substance: MEROPENEM
     Indication: Septic shock
     Dosage: 1 GRAM, QD
     Dates: start: 20241206, end: 20241206
  24. TEICOCIN [Concomitant]
     Indication: Septic shock
     Dosage: 800 MILLIGRAM, BID
     Dates: start: 20241206, end: 20241206
  25. CEFTRIAXONE [Concomitant]
     Active Substance: CEFTRIAXONE
     Indication: Infection
     Dosage: 2 GRAM, QD
     Dates: start: 20241121, end: 20241128
  26. PANTOPRAZOLE SODIUM [Concomitant]
     Active Substance: PANTOPRAZOLE SODIUM
     Indication: Gastrointestinal haemorrhage
     Dosage: 40 MILLIGRAM, QD
     Dates: start: 20241117, end: 20241206
  27. SODIUM BICARBONATE [Concomitant]
     Active Substance: SODIUM BICARBONATE
     Indication: Renal tubular acidosis
     Dosage: 200 MILLIEQUIVALENT, QD
     Dates: start: 20241121, end: 20241207
  28. MORPHINE SULFATE [Concomitant]
     Active Substance: MORPHINE SULFATE
     Indication: Abdominal pain
     Dates: start: 20240930, end: 20241207
  29. METHYLPREDNISOLONE [Concomitant]
     Active Substance: METHYLPREDNISOLONE
     Indication: Graft versus host disease in skin
     Dosage: 40 MILLIGRAM, BID
     Dates: start: 20241021, end: 20241030
  30. METHYLPREDNISOLONE [Concomitant]
     Active Substance: METHYLPREDNISOLONE
     Dosage: 60 MILLIGRAM, BID
     Dates: start: 20241031, end: 20241107
  31. METHYLPREDNISOLONE [Concomitant]
     Active Substance: METHYLPREDNISOLONE
     Dosage: 50 MILLIGRAM, BID
     Dates: start: 20241108, end: 20241117
  32. METHYLPREDNISOLONE [Concomitant]
     Active Substance: METHYLPREDNISOLONE
     Dosage: 40 MILLIGRAM, BID
     Dates: start: 20241118, end: 20241126
  33. METHYLPREDNISOLONE [Concomitant]
     Active Substance: METHYLPREDNISOLONE
     Dosage: 80 MILLIGRAM, BID
     Dates: start: 20241127, end: 20241206

REACTIONS (5)
  - Disseminated intravascular coagulation [Fatal]
  - Gastrointestinal haemorrhage [Not Recovered/Not Resolved]
  - Renal tubular acidosis [Not Recovered/Not Resolved]
  - Graft versus host disease in gastrointestinal tract [Not Recovered/Not Resolved]
  - Septic shock [Not Recovered/Not Resolved]

NARRATIVE: CASE EVENT DATE: 20241116
